FAERS Safety Report 7786794-6 (Version None)
Quarter: 2011Q3

REPORT INFORMATION
  Report Type: 
  Country: None (occurrence: None)
  Receive Date: 20110929
  Receipt Date: 20110915
  Transmission Date: 20111222
  Serious: No
  Sender: FDA-Public Use
  Company Number: US-B.I. PHARMACEUTICALS,INC./RIDGEFIELD-2011-BP-22364BP

PATIENT
  Sex: Male

DRUGS (5)
  1. OCULAR NUTRITION [Concomitant]
     Indication: MACULAR DEGENERATION
     Route: 048
  2. PROSCAR [Concomitant]
     Indication: BENIGN PROSTATIC HYPERPLASIA
     Dosage: 5 MG
     Route: 048
  3. LEVOTHYROXINE [Concomitant]
     Indication: HYPOTHYROIDISM
     Dosage: 0.125 MG
     Route: 048
  4. PRADAXA [Suspect]
     Indication: ATRIAL FIBRILLATION
     Dosage: 300 MG
     Route: 048
     Dates: start: 20110424
  5. MAXZIDE [Concomitant]
     Indication: VENOUS INSUFFICIENCY
     Route: 048

REACTIONS (4)
  - ARTHRALGIA [None]
  - DECREASED APPETITE [None]
  - THIRST [None]
  - PAIN IN EXTREMITY [None]
